FAERS Safety Report 7474712-X (Version None)
Quarter: 2011Q1

REPORT INFORMATION
  Report Type: 
  Country: None (occurrence: None)
  Receive Date: 20110302
  Receipt Date: 20100827
  Transmission Date: 20110831
  Serious: Yes (Other)
  Sender: FDA-Public Use
  Company Number: 163-21880-10041634

PATIENT
  Age: 76 Year
  Sex: Male
  Weight: 121.564 kg

DRUGS (36)
  1. DECADRON [Concomitant]
  2. ANDRODERM [Concomitant]
  3. TRIAMTERENE (TRIAMTERENE) [Concomitant]
  4. LOVASTATIN [Concomitant]
  5. MAGNESIUM (MAGNESIUM) [Concomitant]
  6. VITAMIN D [Concomitant]
  7. TURMERIC (TURMERIC) [Concomitant]
  8. 5-HTP (OXITRIPTAN) [Concomitant]
  9. LEVOTHYROXINE SODIUM [Concomitant]
  10. AMBIEN [Concomitant]
  11. GINKO BILOBA (GINKGO BILOBA) [Concomitant]
  12. ACTOS [Concomitant]
  13. SAW PALMETTO (SERENOA REPENS) [Concomitant]
  14. METAMUCIL (METAMUCIL ^PROCTOR + GAMBLE^) [Concomitant]
  15. SIBERIAN ROOT (VASERETIC) [Concomitant]
  16. LECITHIN (LECITHIN) [Concomitant]
  17. SELENIUM (SELENIUM) [Concomitant]
  18. CRANBERRY EXTRACT [Concomitant]
  19. DOXAZOSIN MESYLATE [Concomitant]
  20. DIMERIC [Concomitant]
  21. CALCIUM (CALCIUM) [Concomitant]
  22. SALMON OIL (LIPITAC) [Concomitant]
  23. PEPTO-BISMOL (BISMUTH SUBSALICYLATE) [Concomitant]
  24. REVLIMID [Suspect]
     Indication: MULTIPLE MYELOMA
     Dosage: 25 MG, DAILY X 21 DAYS, PO; 25 MG, DAILY X 21 DAYS OUT OF 28, PO
     Route: 048
     Dates: start: 20100609
  25. REVLIMID [Suspect]
     Indication: MULTIPLE MYELOMA
     Dosage: 25 MG, DAILY X 21 DAYS, PO; 25 MG, DAILY X 21 DAYS OUT OF 28, PO
     Route: 048
     Dates: start: 20080214
  26. NAPROSYN [Concomitant]
  27. FERROUS SULFATE TAB [Concomitant]
  28. CHROMIUM PICOLINATE (CHROMIUM PICOLINATE) [Concomitant]
  29. LUTEIN (XANTOFYL) [Concomitant]
  30. LISINOPRIL [Concomitant]
  31. FLAXSEED OIL (LINSEED OIL) [Concomitant]
  32. GRAPE SEED EXTRACT (VITIS VINIFERA EXTRACT) [Concomitant]
  33. ZOLOFT [Concomitant]
  34. FOLIC ACID [Concomitant]
  35. GARLIC (GARLIC) [Concomitant]
  36. TRAZODONE (TRAZODONE) [Concomitant]

REACTIONS (10)
  - PANCYTOPENIA [None]
  - HYPOMAGNESAEMIA [None]
  - FATIGUE [None]
  - VITAMIN D DEFICIENCY [None]
  - DIARRHOEA [None]
  - DIZZINESS [None]
  - HYPOKALAEMIA [None]
  - BLOOD PRESSURE SYSTOLIC INCREASED [None]
  - DEPRESSION [None]
  - HYPOCALCAEMIA [None]
